FAERS Safety Report 16921526 (Version 1)
Quarter: 2019Q4

REPORT INFORMATION
  Report Type: Spontaneous
  Country: ES (occurrence: ES)
  Receive Date: 20191015
  Receipt Date: 20191015
  Transmission Date: 20200122
  Serious: Yes (Life-Threatening, Hospitalization)
  Sender: FDA-Public Use
  Company Number: ES-CANTON LABORATORIES, LLC-2075662

PATIENT
  Age: 72 Year
  Sex: Female

DRUGS (4)
  1. MEDIKINET [Concomitant]
     Active Substance: METHYLPHENIDATE
     Route: 048
     Dates: start: 20190319, end: 20190731
  2. NAPROSYN [Suspect]
     Active Substance: NAPROXEN
     Indication: INFLAMMATORY PAIN
     Route: 047
     Dates: start: 20190726, end: 20190731
  3. XARELTO [Interacting]
     Active Substance: RIVAROXABAN
     Route: 048
     Dates: start: 20180414, end: 20190731
  4. XERISTAR [Interacting]
     Active Substance: DULOXETINE HYDROCHLORIDE
     Route: 048
     Dates: start: 20190104, end: 20190731

REACTIONS (1)
  - Pulmonary alveolar haemorrhage [Recovered/Resolved]

NARRATIVE: CASE EVENT DATE: 20190731
